FAERS Safety Report 9014161 (Version 3)
Quarter: 2013Q1

REPORT INFORMATION
  Report Type: Spontaneous
  Country: US (occurrence: US)
  Receive Date: 20130115
  Receipt Date: 20130308
  Transmission Date: 20140127
  Serious: Yes (Hospitalization)
  Sender: FDA-Public Use
  Company Number: US-B.I. PHARMACEUTICALS,INC./RIDGEFIELD-2012-BI-04337BP

PATIENT
  Age: 84 Year
  Sex: Male
  Weight: 74.84 kg

DRUGS (7)
  1. PRADAXA [Suspect]
     Indication: ATRIAL FIBRILLATION
     Dosage: 300 MG
     Dates: start: 20110524, end: 20110925
  2. PRADAXA [Suspect]
     Indication: THROMBOSIS PROPHYLAXIS
  3. ALLOPURINOL [Concomitant]
     Dosage: 300 MG
  4. ALPRAZOLAM [Concomitant]
     Dosage: 1 MG
  5. AMIODARONE [Concomitant]
     Dosage: 100 MG
     Route: 048
  6. LEVOTHYROXINE [Concomitant]
     Dosage: 100 MCG
     Route: 048
  7. PREDNISONE [Concomitant]
     Dosage: 1 MG
     Route: 048

REACTIONS (1)
  - Lower gastrointestinal haemorrhage [Unknown]
